FAERS Safety Report 8473501-7 (Version None)
Quarter: 2012Q2

REPORT INFORMATION
  Report Type: 
  Country: None (occurrence: None)
  Receive Date: 20120625
  Receipt Date: 20120625
  Transmission Date: 20120825
  Serious: Yes (Hospitalization, Other)
  Sender: FDA-Public Use
  Company Number: None

PATIENT
  Sex: Female

DRUGS (1)
  1. ROPINIROLE [Suspect]
     Indication: RESTLESS LEGS SYNDROME
     Dosage: 1 MG TWICE DAILY PO
     Route: 048
     Dates: start: 20040401, end: 20120618

REACTIONS (7)
  - ASTHENIA [None]
  - MEMORY IMPAIRMENT [None]
  - HALLUCINATION [None]
  - FALL [None]
  - SWOLLEN TONGUE [None]
  - DYSARTHRIA [None]
  - CONFUSIONAL STATE [None]
